FAERS Safety Report 20700938 (Version 1)
Quarter: 2022Q2

REPORT INFORMATION
  Report Type: Spontaneous
  Country: US (occurrence: None)
  Receive Date: 20220411
  Receipt Date: 20220411
  Transmission Date: 20220721
  Serious: Yes (Other)
  Sender: FDA-Public Use
  Company Number: None

PATIENT
  Age: 19 Year
  Sex: Male
  Weight: 74.3 kg

DRUGS (1)
  1. REMDESIVIR [Suspect]
     Active Substance: REMDESIVIR
     Indication: COVID-19
     Dosage: OTHER FREQUENCY : 1TIME;?
     Route: 042
     Dates: start: 20220405, end: 20220405

REACTIONS (4)
  - Electrocardiogram abnormal [None]
  - Extrasystoles [None]
  - Arrhythmia [None]
  - Ventricular extrasystoles [None]

NARRATIVE: CASE EVENT DATE: 20220405
